FAERS Safety Report 7036822-0 (Version None)
Quarter: 2010Q4

REPORT INFORMATION
  Report Type: 
  Country: None (occurrence: None)
  Receive Date: 20101011
  Receipt Date: 20101004
  Transmission Date: 20110411
  Serious: Yes (Hospitalization, Other)
  Sender: FDA-Public Use
  Company Number: US-ELI_LILLY_AND_COMPANY-US201005000733

PATIENT
  Sex: Male
  Weight: 111.11 kg

DRUGS (11)
  1. BYETTA [Suspect]
     Indication: DIABETES MELLITUS
     Dosage: UNK, UNKNOWN
     Dates: start: 20070223, end: 20091005
  2. METFORMIN [Concomitant]
     Indication: DIABETES MELLITUS
     Dates: start: 20070327, end: 20090902
  3. AVANDIA [Concomitant]
     Indication: DIABETES MELLITUS
     Dates: start: 20070424
  4. ACTOS [Concomitant]
     Indication: DIABETES MELLITUS
     Dosage: UNK, UNK
     Dates: start: 20090428
  5. FOSINOPRIL [Concomitant]
     Indication: HYPERTENSION
     Dates: start: 20070327
  6. LISINOPRIL /USA/ [Concomitant]
     Indication: HYPERTENSION
     Dosage: UNK, UNK
     Dates: start: 20070831
  7. CRESTOR [Concomitant]
     Indication: BLOOD CHOLESTEROL
     Dates: start: 20070330, end: 20091119
  8. HYDROXYZINE PAMOATE [Concomitant]
     Indication: ANXIETY
     Dosage: UNK, UNK
     Dates: start: 20070301
  9. SEROQUEL [Concomitant]
     Indication: ANXIETY
     Dates: start: 20080513
  10. FLUOXETINE [Concomitant]
     Indication: ANXIETY
     Dates: start: 20080220
  11. TRAZODONE HCL [Concomitant]
     Indication: ANXIETY
     Dates: start: 20080515

REACTIONS (3)
  - DYSURIA [None]
  - PANCREATITIS [None]
  - RENAL FAILURE ACUTE [None]
